FAERS Safety Report 7215405-3 (Version None)
Quarter: 2011Q1

REPORT INFORMATION
  Report Type: 
  Country: None (occurrence: None)
  Receive Date: 20110104
  Receipt Date: 20110104
  Transmission Date: 20110831
  Serious: Yes (Hospitalization)
  Sender: FDA-Public Use
  Company Number: None

PATIENT
  Age: 14 Year
  Sex: Female

DRUGS (1)
  1. NAFCILLIN [Suspect]
     Indication: INFECTION
     Dosage: IV
     Route: 042

REACTIONS (2)
  - RASH [None]
  - PRURITUS [None]
